FAERS Safety Report 7245299-1 (Version None)
Quarter: 2011Q1

REPORT INFORMATION
  Report Type: 
  Country: None (occurrence: None)
  Receive Date: 20110126
  Receipt Date: 20110113
  Transmission Date: 20110831
  Serious: Yes (Hospitalization, Other)
  Sender: FDA-Public Use
  Company Number: IT-ROCHE-729635

PATIENT
  Sex: Female
  Weight: 46 kg

DRUGS (24)
  1. LANSOPRAZOLE [Concomitant]
     Dates: start: 20060630
  2. AMLODIPINE [Concomitant]
     Dates: start: 20101227
  3. TORVAST [Concomitant]
     Dates: start: 20100517
  4. FUROSEMIDE [Concomitant]
     Dates: start: 20020630
  5. CLOPIDOGREL [Concomitant]
     Dates: start: 20090115
  6. PRAVASTATIN [Concomitant]
     Dates: start: 20110113
  7. METHOXY POLYETHYLENE GLYCOL-EPOETIN BETA [Suspect]
     Dosage: LAST DOSE PRIOR TO SAE:15 NOVEMBER 2010, DOSAGE FORM: PFS
     Route: 042
  8. ASPIRIN [Concomitant]
     Dates: start: 20091226
  9. CARVEDILOL [Concomitant]
     Dates: start: 20100531
  10. TELMISARTAN [Concomitant]
     Dates: start: 20100122
  11. ACETAMINOPHEN [Concomitant]
     Dates: start: 20101006
  12. METHOXY POLYETHYLENE GLYCOL-EPOETIN BETA [Suspect]
     Dosage: LAST DOSE PRIOR TO SAE: 15 DECEMBER 2010
     Route: 042
  13. DARBEPOETIN ALFA [Suspect]
     Dosage: NURSE MISTAKE ON 15 DEC 2010, DARBEPOTIN ALFA (BATCH 1016812) WAS ADMINISTERED.
     Route: 065
     Dates: start: 20101215
  14. PARICALCITOL [Concomitant]
     Dosage: REPORTED AS PARACALCITOL
     Dates: start: 20101106
  15. TELMISARTAN [Concomitant]
     Dates: start: 20101203
  16. RISEDRONIC ACID [Concomitant]
     Dates: start: 20090804
  17. DIGOXIN [Concomitant]
     Dosage: TDD: 625 GU
     Dates: start: 20100702, end: 20101124
  18. METHOXY POLYETHYLENE GLYCOL-EPOETIN BETA [Suspect]
     Dosage: LAST DOSE PRIOR TO SAE: 16 JUNE 2010, DOSAGE FORM: PFS
     Route: 042
     Dates: start: 20100414
  19. PREDNISONE [Concomitant]
     Dates: start: 20100417
  20. IRON GLUCONATE [Concomitant]
     Dates: start: 20100915
  21. VERAPAMIL [Concomitant]
  22. SEVELAMER [Concomitant]
     Dates: start: 20090804
  23. RISEDRONIC ACID [Concomitant]
     Dosage: TOTAL DOSE: 70 MG
     Dates: start: 20100122
  24. METOPROLOL [Concomitant]
     Dates: start: 20100702

REACTIONS (3)
  - MYOCARDIAL INFARCTION [None]
  - ANGINA PECTORIS [None]
  - CHRONIC MYELOID LEUKAEMIA [None]
